FAERS Safety Report 6091238-9 (Version None)
Quarter: 2009Q1

REPORT INFORMATION
  Report Type: 
  Country: None (occurrence: None)
  Receive Date: 20090220
  Receipt Date: 20090220
  Transmission Date: 20090719
  Serious: No
  Sender: FDA-Public Use
  Company Number: None

PATIENT
  Age: 61 Year
  Sex: Male
  Weight: 70.3075 kg

DRUGS (1)
  1. ATENOLOL [Suspect]
     Indication: ATRIAL FIBRILLATION
     Dosage: 25 MG ONCE DAILY
     Dates: start: 20071107, end: 20080117

REACTIONS (4)
  - AMNESIA [None]
  - ANXIETY [None]
  - HEARING IMPAIRED [None]
  - VERTIGO [None]
